FAERS Safety Report 9525670 (Version 3)
Quarter: 2013Q4

REPORT INFORMATION
  Report Type: Report from Study
  Country: US (occurrence: US)
  Receive Date: 20130916
  Receipt Date: 20131202
  Transmission Date: 20140711
  Serious: Yes (Hospitalization)
  Sender: FDA-Public Use
  Company Number: US-SANOFI-AVENTIS-2013SA089744

PATIENT
  Age: 57 Year
  Sex: Male

DRUGS (21)
  1. AUBAGIO [Suspect]
     Indication: MULTIPLE SCLEROSIS
     Route: 048
     Dates: start: 201308
  2. AUBAGIO [Suspect]
     Indication: MULTIPLE SCLEROSIS
     Route: 048
     Dates: start: 20130907
  3. AUBAGIO [Suspect]
     Indication: MULTIPLE SCLEROSIS
     Route: 048
     Dates: start: 201309
  4. MAGNESIUM [Concomitant]
  5. POTASSIUM [Concomitant]
  6. GABAPENTIN [Concomitant]
  7. PHENYTOIN [Concomitant]
  8. LEVOTHYROXINE [Concomitant]
  9. ENTOCORT EC [Concomitant]
  10. ALENDRONATE [Concomitant]
  11. CARVEDILOL [Concomitant]
  12. OMEPRAZOLE [Concomitant]
  13. VITAMIN D3 [Concomitant]
     Dosage: DOSE:10000 UNIT(S)
  14. IRON [Concomitant]
  15. CLARITIN [Concomitant]
  16. OXYMORPHONE [Concomitant]
  17. DARVON N [Concomitant]
  18. DIAZEPAM [Concomitant]
  19. NITROQUICK [Concomitant]
     Route: 060
  20. TRAZODONE [Concomitant]
  21. BENADRYL [Concomitant]

REACTIONS (13)
  - Cognitive disorder [Unknown]
  - Dehydration [Recovered/Resolved]
  - Vomiting [Recovered/Resolved]
  - Diarrhoea [Recovered/Resolved]
  - Pain [Recovered/Resolved]
  - Electroencephalogram abnormal [Unknown]
  - Fatigue [Not Recovered/Not Resolved]
  - Abdominal pain upper [Recovered/Resolved]
  - Influenza like illness [Recovered/Resolved]
  - Nasopharyngitis [Recovered/Resolved]
  - Chills [Recovered/Resolved]
  - Weight decreased [Unknown]
  - Pyrexia [Unknown]
